FAERS Safety Report 8838112 (Version 1)
Quarter: 2012Q4

REPORT INFORMATION
  Report Type: 
  Country: DE (occurrence: DE)
  Receive Date: 20121012
  Receipt Date: 20121012
  Transmission Date: 20130627
  Serious: Yes (Other)
  Sender: FDA-Public Use
  Company Number: DE-AMGEN-DEUSP2012063275

PATIENT
  Sex: Male

DRUGS (1)
  1. ARANESP [Suspect]
     Indication: MYELODYSPLASTIC SYNDROME
     Dosage: 150 mug, UNK

REACTIONS (4)
  - Drug ineffective [Unknown]
  - Eosinophil count increased [Recovered/Resolved]
  - Blood immunoglobulin E increased [Unknown]
  - Hypersensitivity [Unknown]
